FAERS Safety Report 8078409-7 (Version None)
Quarter: 2012Q1

REPORT INFORMATION
  Report Type: 
  Country: None (occurrence: None)
  Receive Date: 20120123
  Receipt Date: 20120109
  Transmission Date: 20120608
  Serious: Yes (Death, Hospitalization, Disabling, Other)
  Sender: FDA-Public Use
  Company Number: 2012MA000548

PATIENT
  Age: 55 Year
  Sex: Female

DRUGS (5)
  1. GABAPENTIN [Suspect]
     Indication: NEURALGIA
     Dosage: ;UNK;UNK
  2. DULOXETIME HYDROCHLORIDE [Suspect]
     Indication: NEURALGIA
     Dosage: 20 MG;QD;UNK
  3. HYDROCODONE BITARTRATE [Suspect]
     Indication: NEURALGIA
     Dosage: 10 MG;UNK;UNK
  4. FENTANYL CITRATE [Suspect]
     Indication: NEURALGIA
     Dosage: 75 MCG/HR;UNK;UNK
  5. ACETAMINOPHEN [Suspect]
     Indication: NEURALGIA
     Dosage: 325 MG;UNK;UNK

REACTIONS (28)
  - METASTASIS [None]
  - LETHARGY [None]
  - GENERAL PHYSICAL HEALTH DETERIORATION [None]
  - SLUGGISHNESS [None]
  - FALL [None]
  - HYPERTENSION [None]
  - SKIN NECROSIS [None]
  - AGITATION [None]
  - NEURALGIA [None]
  - DELIRIUM [None]
  - HYPERCALCAEMIA [None]
  - REFUSAL OF TREATMENT BY PATIENT [None]
  - MENTAL STATUS CHANGES [None]
  - INADEQUATE ANALGESIA [None]
  - CATARACT [None]
  - ACTIVITIES OF DAILY LIVING IMPAIRED [None]
  - ARTHRALGIA [None]
  - TREATMENT FAILURE [None]
  - PULMONARY HYPERTENSION [None]
  - SQUAMOUS CELL CARCINOMA [None]
  - RENAL FAILURE CHRONIC [None]
  - DIABETES MELLITUS [None]
  - SKIN LESION [None]
  - CANCER PAIN [None]
  - PAIN [None]
  - STUPOR [None]
  - CONFUSIONAL STATE [None]
  - RENAL FAILURE ACUTE [None]
